FAERS Safety Report 6809299-5 (Version None)
Quarter: 2010Q2

REPORT INFORMATION
  Report Type: 
  Country: None (occurrence: None)
  Receive Date: 20100630
  Receipt Date: 20100621
  Transmission Date: 20101027
  Serious: Yes (Hospitalization)
  Sender: FDA-Public Use
  Company Number: US-BRISTOL-MYERS SQUIBB COMPANY-15159387

PATIENT
  Age: 72 Year
  Sex: Female

DRUGS (5)
  1. CEFEPIME [Suspect]
     Indication: OSTEOMYELITIS
     Route: 042
  2. IBUPROFEN [Concomitant]
  3. OXYCONTIN [Concomitant]
  4. IPRATROPIUM + SALBUTAMOL [Concomitant]
     Route: 055
  5. OXYCODONE HCL AND ACETAMINOPHEN [Concomitant]

REACTIONS (1)
  - STATUS EPILEPTICUS [None]
